FAERS Safety Report 23843607 (Version 1)
Quarter: 2024Q2

REPORT INFORMATION
  Report Type: Spontaneous
  Country: US (occurrence: None)
  Receive Date: 20240510
  Receipt Date: 20240510
  Transmission Date: 20240716
  Serious: Yes (Hospitalization)
  Sender: FDA-Public Use
  Company Number: None

PATIENT
  Age: 34 Year
  Sex: Male
  Weight: 109 kg

DRUGS (2)
  1. SEVOFLURANE [Suspect]
     Active Substance: SEVOFLURANE
     Indication: Surgery
     Dates: start: 20220627, end: 20220627
  2. ROCURONIUM [Suspect]
     Active Substance: ROCURONIUM BROMIDE

REACTIONS (5)
  - Hyperthermia malignant [None]
  - Respiratory rate decreased [None]
  - Heart rate increased [None]
  - Metabolic acidosis [None]
  - Headache [None]

NARRATIVE: CASE EVENT DATE: 20220627
